FAERS Safety Report 13000888 (Version 1)
Quarter: 2016Q4

REPORT INFORMATION
  Report Type: Spontaneous
  Country: IT (occurrence: IT)
  Receive Date: 20161206
  Receipt Date: 20161206
  Transmission Date: 20170207
  Serious: Yes (Other)
  Sender: FDA-Public Use
  Company Number: IT-AMGEN-ITASP2016170289

PATIENT
  Age: 54 Year
  Sex: Female

DRUGS (2)
  1. PANITUMUMAB [Suspect]
     Active Substance: PANITUMUMAB
     Indication: COLON CANCER
     Dosage: 350 MG, CYCLICAL
     Route: 042
     Dates: start: 20160805
  2. CAPECITABINA ACCORD [Concomitant]
     Active Substance: CAPECITABINE
     Indication: COLON CANCER
     Dosage: 5 POSOLOGIC UNITS, CYCLICAL
     Route: 048
     Dates: start: 20160805, end: 20161102

REACTIONS (1)
  - Anaemia [Recovering/Resolving]

NARRATIVE: CASE EVENT DATE: 20161115
